FAERS Safety Report 7940782-5 (Version None)
Quarter: 2011Q4

REPORT INFORMATION
  Report Type: 
  Country: None (occurrence: None)
  Receive Date: 20111128
  Receipt Date: 20111121
  Transmission Date: 20120403
  Serious: Yes (Death)
  Sender: FDA-Public Use
  Company Number: RU-PFIZER INC-2011285094

PATIENT
  Age: 13 Year
  Sex: Male
  Weight: 30 kg

DRUGS (3)
  1. TYGACIL [Suspect]
     Indication: STENOTROPHOMONAS SEPSIS
     Dosage: 50 MG IN THE MORNING AND 25 MG IN THE EVENING
     Route: 042
     Dates: start: 20111111, end: 20111113
  2. TYGACIL [Suspect]
     Indication: ICHTHYOSIS
  3. TYGACIL [Suspect]
     Indication: PNEUMONIA
     Dosage: 25 MG, 2X/DAY
     Route: 042
     Dates: start: 20111114

REACTIONS (2)
  - PULMONARY OEDEMA [None]
  - INCORRECT DOSE ADMINISTERED [None]
